FAERS Safety Report 4358157-7 (Version None)
Quarter: 2004Q2

REPORT INFORMATION
  Report Type: 
  Country: None (occurrence: None)
  Receive Date: 20040510
  Receipt Date: 20040422
  Transmission Date: 20050107
  Serious: Yes (Hospitalization)
  Sender: FDA-Public Use
  Company Number: 2004-DE-02178GD

PATIENT
  Age: 62 Year
  Sex: Male

DRUGS (4)
  1. MEXILETINE HCL [Suspect]
     Indication: NEUROPATHIC PAIN
  2. MORPHINE [Suspect]
     Indication: NEUROPATHIC PAIN
  3. DEXAMETHASONE [Concomitant]
  4. HYDROMORPHONE [Suspect]
     Indication: NEUROPATHIC PAIN

REACTIONS (9)
  - AGITATION [None]
  - CONFUSIONAL STATE [None]
  - DRUG INEFFECTIVE [None]
  - DRUG TOXICITY [None]
  - HALLUCINATION [None]
  - MYOCLONUS [None]
  - NAUSEA [None]
  - PAIN [None]
  - SEDATION [None]
